FAERS Safety Report 13009278 (Version 2)
Quarter: 2016Q4

REPORT INFORMATION
  Report Type: Spontaneous
  Country: JP (occurrence: JP)
  Receive Date: 20161208
  Receipt Date: 20161227
  Transmission Date: 20170207
  Serious: Yes (Other)
  Sender: FDA-Public Use
  Company Number: JP-BAYER-2011-006362

PATIENT
  Age: 76 Year
  Sex: Male

DRUGS (6)
  1. MENATETRENONE [Concomitant]
     Active Substance: MENATETRENONE
     Dosage: DAILY DOSE 45 MG
     Route: 048
     Dates: start: 201012
  2. NEXAVAR [Suspect]
     Active Substance: SORAFENIB
     Indication: HEPATOCELLULAR CARCINOMA
     Dosage: 400 MG/DAY
     Dates: start: 2012, end: 201307
  3. NEXAVAR [Suspect]
     Active Substance: SORAFENIB
     Indication: HEPATOCELLULAR CARCINOMA
     Dosage: 400 MG/DAY
     Route: 048
     Dates: start: 2011, end: 2011
  4. NEXAVAR [Suspect]
     Active Substance: SORAFENIB
     Indication: HEPATOCELLULAR CARCINOMA
     Dosage: 600 MG DAILY
     Route: 048
     Dates: start: 20101207, end: 201101
  5. NEXAVAR [Suspect]
     Active Substance: SORAFENIB
     Indication: HEPATOCELLULAR CARCINOMA
     Dosage: 200 MG/DAY
     Route: 048
     Dates: start: 201101, end: 2011
  6. NEXAVAR [Suspect]
     Active Substance: SORAFENIB
     Indication: HEPATOCELLULAR CARCINOMA
     Dosage: 200 MG/DAY
     Route: 048
     Dates: start: 2011, end: 2012

REACTIONS (9)
  - Ascites [None]
  - Alpha 1 foetoprotein increased [None]
  - Fall [Unknown]
  - Pleural effusion [None]
  - Diarrhoea [Recovering/Resolving]
  - Palmar-plantar erythrodysaesthesia syndrome [Not Recovered/Not Resolved]
  - Fracture [Unknown]
  - Decreased appetite [None]
  - Palmar-plantar erythrodysaesthesia syndrome [None]

NARRATIVE: CASE EVENT DATE: 2011
